FAERS Safety Report 23533637 (Version 1)
Quarter: 2024Q1

REPORT INFORMATION
  Report Type: Spontaneous
  Country: NL (occurrence: NL)
  Receive Date: 20240216
  Receipt Date: 20240216
  Transmission Date: 20240409
  Serious: Yes (Other)
  Sender: FDA-Public Use
  Company Number: None

PATIENT
  Age: 36 Year
  Sex: Female
  Weight: 62 kg

DRUGS (1)
  1. BACLOFEN [Suspect]
     Active Substance: BACLOFEN
     Indication: Hypotonia
     Dosage: 25 MILLIGRAM, QD (EVENING 1 TABLET)
     Route: 065
     Dates: start: 20230706

REACTIONS (19)
  - Syncope [Unknown]
  - Heart rate increased [Unknown]
  - Chromaturia [Unknown]
  - Back pain [Unknown]
  - Bladder discomfort [Unknown]
  - Chills [Unknown]
  - Facial pain [Unknown]
  - Feeling of body temperature change [Unknown]
  - Urine odour abnormal [Unknown]
  - Urinary hesitation [Unknown]
  - Dyspnoea [Unknown]
  - Blood pressure decreased [Unknown]
  - Fatigue [Unknown]
  - Hyperhidrosis [Unknown]
  - Insomnia [Unknown]
  - Nausea [Unknown]
  - Headache [Unknown]
  - Confusional state [Unknown]
  - Constipation [Unknown]

NARRATIVE: CASE EVENT DATE: 20240120
